FAERS Safety Report 13129809 (Version 1)
Quarter: 2017Q1

REPORT INFORMATION
  Report Type: Spontaneous
  Country: US (occurrence: US)
  Receive Date: 20170118
  Receipt Date: 20170118
  Transmission Date: 20170428
  Serious: Yes (Hospitalization)
  Sender: FDA-Public Use
  Company Number: None

PATIENT
  Age: 53 Year
  Sex: Female
  Weight: 100.7 kg

DRUGS (18)
  1. NOVOLOG [Suspect]
     Active Substance: INSULIN ASPART
     Indication: DIABETES MELLITUS
     Dosage: OTHER
     Route: 058
     Dates: start: 20160531, end: 20160604
  2. GLIPIZIDE. [Concomitant]
     Active Substance: GLIPIZIDE
  3. KETOROLAC [Concomitant]
     Active Substance: KETOROLAC\KETOROLAC TROMETHAMINE
  4. TEMOVATE OINTMENT [Concomitant]
  5. PREGABALIN. [Concomitant]
     Active Substance: PREGABALIN
  6. ZOFRAN [Concomitant]
     Active Substance: ONDANSETRON HYDROCHLORIDE
  7. DOCUSATE [Concomitant]
     Active Substance: DOCUSATE
  8. METFORMIN [Concomitant]
     Active Substance: METFORMIN HYDROCHLORIDE
  9. ALBUTEROL. [Concomitant]
     Active Substance: ALBUTEROL
  10. TYLENOL [Concomitant]
     Active Substance: ACETAMINOPHEN
  11. PAROXETINE. [Concomitant]
     Active Substance: PAROXETINE
  12. LACTULOSE. [Concomitant]
     Active Substance: LACTULOSE
  13. LEVEMIR [Suspect]
     Active Substance: INSULIN DETEMIR
     Indication: DIABETES MELLITUS
     Route: 058
     Dates: start: 20160531, end: 20160604
  14. ASPIRIN. [Concomitant]
     Active Substance: ASPIRIN
  15. PERCOCET [Concomitant]
     Active Substance: ACETAMINOPHEN\OXYCODONE HYDROCHLORIDE
  16. GABAPENTIN. [Concomitant]
     Active Substance: GABAPENTIN
  17. FLONASE [Concomitant]
     Active Substance: FLUTICASONE PROPIONATE
  18. HYDROXYZINE [Concomitant]
     Active Substance: HYDROXYZINE HYDROCHLORIDE

REACTIONS (8)
  - Nausea [None]
  - Cough [None]
  - Pain in extremity [None]
  - Neuritis [None]
  - Spinal osteoarthritis [None]
  - Feeling hot [None]
  - Cervical radiculopathy [None]
  - Constipation [None]

NARRATIVE: CASE EVENT DATE: 20160601
